FAERS Safety Report 13585270 (Version 1)
Quarter: 2017Q2

REPORT INFORMATION
  Report Type: Spontaneous
  Country: US (occurrence: US)
  Receive Date: 20170526
  Receipt Date: 20170526
  Transmission Date: 20170830
  Serious: No
  Sender: FDA-Public Use
  Company Number: US-MALLINCKRODT-T201605013

PATIENT
  Sex: Male
  Weight: 91 kg

DRUGS (1)
  1. HYDROCODONE/ACETAMINOPHEN [Suspect]
     Active Substance: ACETAMINOPHEN\HYDROCODONE
     Indication: INTERVERTEBRAL DISC PROTRUSION
     Dosage: 1 DF, TID
     Route: 048
     Dates: start: 201607

REACTIONS (2)
  - Drug screen positive [Not Recovered/Not Resolved]
  - Product contamination [Not Recovered/Not Resolved]

NARRATIVE: CASE EVENT DATE: 2016
